FAERS Safety Report 20893821 (Version 1)
Quarter: 2022Q2

REPORT INFORMATION
  Report Type: Spontaneous
  Country: CA (occurrence: CA)
  Receive Date: 20220531
  Receipt Date: 20220531
  Transmission Date: 20220721
  Serious: Yes (Other)
  Sender: FDA-Public Use
  Company Number: CA-AUROBINDO-AUR-APL-2022-018810

PATIENT
  Age: 39 Year
  Sex: Female

DRUGS (5)
  1. DULOXETINE [Suspect]
     Active Substance: DULOXETINE
     Indication: Migraine prophylaxis
     Dosage: 30 MILLIGRAM, ONCE A DAY
     Route: 065
  2. DULOXETINE [Suspect]
     Active Substance: DULOXETINE
     Indication: Depression
  3. DULOXETINE [Suspect]
     Active Substance: DULOXETINE
     Indication: Anxiety
  4. PAROXETINE [Suspect]
     Active Substance: PAROXETINE
     Indication: Mood swings
     Dosage: 10 MILLIGRAM, ONCE A DAY
     Route: 065
  5. SUMATRIPTAN [Suspect]
     Active Substance: SUMATRIPTAN
     Indication: Migraine
     Dosage: 100 MILLIGRAM AS REQUIRED
     Route: 048

REACTIONS (14)
  - Anxiety [Unknown]
  - Agitation [Unknown]
  - Body temperature increased [Unknown]
  - Condition aggravated [Unknown]
  - Depressed mood [Unknown]
  - Depressive symptom [Unknown]
  - Drug ineffective [Unknown]
  - Drug-disease interaction [Unknown]
  - Dyspepsia [Unknown]
  - Headache [Unknown]
  - Hot flush [Unknown]
  - Hyperhidrosis [Unknown]
  - Insomnia [Unknown]
  - Middle insomnia [Unknown]
